FAERS Safety Report 15614575 (Version 9)
Quarter: 2022Q2

REPORT INFORMATION
  Report Type: Spontaneous
  Country: JP (occurrence: JP)
  Receive Date: 20181113
  Receipt Date: 20220426
  Transmission Date: 20220721
  Serious: Yes (Other)
  Sender: FDA-Public Use
  Company Number: JP-BRISTOL-MYERS SQUIBB COMPANY-BMS-2018-106572

PATIENT
  Age: 71 Year
  Sex: Female

DRUGS (8)
  1. NIVOLUMAB [Suspect]
     Active Substance: NIVOLUMAB
     Indication: Metastatic renal cell carcinoma
     Dosage: 3 MG/KG/DAY
     Route: 041
     Dates: start: 20170524, end: 20180206
  2. SUTENT [Concomitant]
     Active Substance: SUNITINIB MALATE
     Indication: Product used for unknown indication
     Dosage: UNK
     Route: 065
  3. INTERFERON ALFA (BALL-1) [Concomitant]
     Indication: Product used for unknown indication
     Route: 065
  4. INLYTA [Concomitant]
     Active Substance: AXITINIB
     Indication: Product used for unknown indication
     Route: 065
  5. VOTRIENT [Concomitant]
     Active Substance: PAZOPANIB HYDROCHLORIDE
     Indication: Product used for unknown indication
     Route: 065
  6. VONOPRAZAN FUMARATE [Concomitant]
     Active Substance: VONOPRAZAN FUMARATE
     Indication: Product used for unknown indication
     Dosage: 20 MILLIGRAM EVERYDAY
     Route: 048
  7. TELMISARTAN [Concomitant]
     Active Substance: TELMISARTAN
     Indication: Product used for unknown indication
     Dosage: 40 MILLIGRAM EVERYDAY
     Route: 048
  8. ADIPINE [AMLODIPINE BESILATE] [Concomitant]
     Indication: Product used for unknown indication
     Dosage: 5 MILLIGRAM EVERYDAY
     Route: 048

REACTIONS (1)
  - Cellulitis [Recovering/Resolving]

NARRATIVE: CASE EVENT DATE: 20180218
